FAERS Safety Report 19221105 (Version 1)
Quarter: 2021Q2

REPORT INFORMATION
  Report Type: Report from Study
  Country: CN (occurrence: CN)
  Receive Date: 20210505
  Receipt Date: 20210505
  Transmission Date: 20210717
  Serious: Yes (Life-Threatening, Hospitalization)
  Sender: FDA-Public Use
  Company Number: CN-ASTRAZENECA-2020SF06934

PATIENT
  Age: 23518 Day
  Sex: Male

DRUGS (105)
  1. GEMCITABINE. [Suspect]
     Active Substance: GEMCITABINE
     Indication: TRANSITIONAL CELL CARCINOMA
     Route: 042
     Dates: start: 20200528, end: 20200528
  2. GEMCITABINE. [Suspect]
     Active Substance: GEMCITABINE
     Indication: TRANSITIONAL CELL CARCINOMA
     Route: 042
     Dates: start: 20200727, end: 20200727
  3. CARBOPLATIN. [Suspect]
     Active Substance: CARBOPLATIN
     Indication: TRANSITIONAL CELL CARCINOMA
     Dosage: 5 AUC, EVERY THREE WEEKS
     Route: 042
     Dates: start: 20200715, end: 20200715
  4. ONDANSETRON HYDROCHLORIDE TABLETS [Concomitant]
     Active Substance: ONDANSETRON HYDROCHLORIDE
     Indication: NAUSEA
     Route: 065
     Dates: start: 20200527, end: 20200527
  5. ONDANSETRON HYDROCHLORIDE TABLETS [Concomitant]
     Active Substance: ONDANSETRON HYDROCHLORIDE
     Indication: NAUSEA
     Route: 048
     Dates: start: 20200727, end: 20200727
  6. PALONOSETRON HYDROCHLORIDE INJECTION [Concomitant]
     Active Substance: PALONOSETRON HYDROCHLORIDE
     Indication: PROPHYLAXIS OF NAUSEA AND VOMITING
     Route: 042
     Dates: start: 20200528, end: 20200528
  7. PALONOSETRON HYDROCHLORIDE INJECTION [Concomitant]
     Active Substance: PALONOSETRON HYDROCHLORIDE
     Indication: PROPHYLAXIS OF NAUSEA AND VOMITING
     Route: 042
     Dates: start: 20200715, end: 20200715
  8. PALONOSETRON HYDROCHLORIDE INJECTION [Concomitant]
     Active Substance: PALONOSETRON HYDROCHLORIDE
     Indication: PROPHYLAXIS OF NAUSEA AND VOMITING
     Route: 042
     Dates: start: 20200911, end: 20200911
  9. SODIUM RABEPRAZOLE ENTERIC?COATED TABLETS [Concomitant]
     Indication: PROPHYLAXIS
     Route: 065
     Dates: start: 20200528, end: 20200528
  10. RABEPRAZOLE SODIUM FOR INJECTION [Concomitant]
     Indication: PROPHYLAXIS
     Route: 042
     Dates: start: 20200521, end: 20200521
  11. FOSAPREPITANT DIMEGLUMINER FOR INJECTION [Concomitant]
     Indication: PROPHYLAXIS OF NAUSEA AND VOMITING
     Route: 042
     Dates: start: 20200921, end: 20200921
  12. FUROSEMIDE. [Concomitant]
     Active Substance: FUROSEMIDE
     Indication: HYPERKALAEMIA
     Route: 042
     Dates: start: 20200805, end: 20200805
  13. FUROSEMIDE. [Concomitant]
     Active Substance: FUROSEMIDE
     Indication: HYPERKALAEMIA
     Route: 042
     Dates: start: 20200812, end: 20200812
  14. FUROSEMIDE. [Concomitant]
     Active Substance: FUROSEMIDE
     Indication: HYPERKALAEMIA
     Route: 048
     Dates: start: 20200821, end: 20200821
  15. FUROSEMIDE. [Concomitant]
     Active Substance: FUROSEMIDE
     Indication: HYPERKALAEMIA
     Route: 048
     Dates: start: 20200821, end: 20200821
  16. IBUPROFEN SUSTAINED?RELEASE CAPSULES [Concomitant]
     Indication: CANCER PAIN
     Route: 048
     Dates: start: 20200715, end: 20200715
  17. RECOMBINANT HUMAN INTERLEUKIN?11 FOR INJECTION [Concomitant]
     Indication: PLATELET COUNT DECREASED
     Dosage: UNKNOWN
     Route: 065
     Dates: start: 202006, end: 202006
  18. RECOMBINANT HUMAN INTERLEUKIN?11 FOR INJECTION [Concomitant]
     Indication: PLATELET COUNT INCREASED
     Route: 030
     Dates: start: 20200727, end: 20200727
  19. RECOMBINANT HUMANTHROMBOPOIETIN INJECTION [Concomitant]
     Indication: PLATELET COUNT DECREASED
     Dosage: UNKNOWN
     Route: 065
     Dates: start: 202006, end: 202006
  20. RECOMBINANT HUMANTHROMBOPOIETIN INJECTION [Concomitant]
     Indication: PLATELET COUNT DECREASED
     Route: 058
     Dates: start: 20200816, end: 20200816
  21. RECOMBINANT HUMAN GRANULOCYTE COLONY STIMULATING FACTOR INJECTION [Concomitant]
     Indication: PLATELET COUNT DECREASED
     Dosage: UNKNOWN
     Route: 065
     Dates: start: 202006, end: 202006
  22. RECOMBINANT HUMAN GRANULOCYTE COLONY STIMULATING FACTOR INJECTION [Concomitant]
     Indication: WHITE BLOOD CELL COUNT INCREASED
     Route: 058
     Dates: start: 20200819, end: 20200819
  23. TREMELIMUMAB. [Suspect]
     Active Substance: TREMELIMUMAB
     Indication: TRANSITIONAL CELL CARCINOMA
     Route: 042
     Dates: start: 20200715, end: 20200715
  24. GEMCITABINE. [Suspect]
     Active Substance: GEMCITABINE
     Indication: TRANSITIONAL CELL CARCINOMA
     Route: 042
     Dates: start: 20200715, end: 20200715
  25. GEMCITABINE. [Suspect]
     Active Substance: GEMCITABINE
     Indication: TRANSITIONAL CELL CARCINOMA
     Route: 042
     Dates: start: 20200805, end: 20200805
  26. ONDANSETRON HYDROCHLORIDE TABLETS [Concomitant]
     Active Substance: ONDANSETRON HYDROCHLORIDE
     Indication: PROPHYLAXIS OF NAUSEA AND VOMITING
     Route: 048
     Dates: start: 20200727, end: 20200727
  27. VITAMIN C INJECTION [Concomitant]
     Active Substance: ASCORBIC ACID
     Indication: VITAMIN SUPPLEMENTATION
     Route: 042
     Dates: start: 20200715, end: 20200715
  28. FOSAPREPITANT DIMEGLUMINER FOR INJECTION [Concomitant]
     Indication: PROPHYLAXIS OF NAUSEA AND VOMITING
     Route: 042
     Dates: start: 20200521, end: 20200521
  29. ASPIRIN ENTERIC?COATED TABLETS [Concomitant]
     Active Substance: ASPIRIN
     Indication: MYOCARDIAL INFARCTION
     Route: 048
     Dates: start: 20200611
  30. LEUCOGEN TABLETS [Concomitant]
     Indication: MYELOSUPPRESSION
     Route: 048
     Dates: start: 20200728, end: 20200729
  31. FUROSEMIDE. [Concomitant]
     Active Substance: FUROSEMIDE
     Indication: HYPERKALAEMIA
     Route: 048
     Dates: start: 20200804, end: 20200806
  32. CEFOPERAZONE SODIUM AND SULBACTAM SODIUM FOR INJECTION [Concomitant]
     Indication: INFLAMMATION
     Route: 042
     Dates: start: 20200628, end: 20200703
  33. RECOMBINANT HUMAN INTERLEUKIN?11 FOR INJECTION [Concomitant]
     Indication: PLATELET COUNT INCREASED
     Route: 030
     Dates: start: 20200723, end: 20200723
  34. RECOMBINANT HUMAN INTERLEUKIN?11 FOR INJECTION [Concomitant]
     Indication: PLATELET COUNT DECREASED
     Route: 030
     Dates: start: 20200727, end: 20200727
  35. RECOMBINANT HUMAN INTERLEUKIN?11 FOR INJECTION [Concomitant]
     Indication: PLATELET COUNT INCREASED
     Route: 058
     Dates: start: 20200814, end: 20200814
  36. RECOMBINANT HUMANTHROMBOPOIETIN INJECTION [Concomitant]
     Indication: PLATELET COUNT INCREASED
     Dosage: UNKNOWN
     Route: 065
     Dates: start: 202006, end: 202006
  37. RECOMBINANT HUMANTHROMBOPOIETIN INJECTION [Concomitant]
     Indication: PLATELET COUNT DECREASED
     Route: 058
     Dates: start: 20200724, end: 20200727
  38. RECOMBINANT HUMANTHROMBOPOIETIN INJECTION [Concomitant]
     Indication: PLATELET COUNT INCREASED
     Route: 058
     Dates: start: 20200819, end: 20200821
  39. RECOMBINANT HUMANTHROMBOPOIETIN INJECTION [Concomitant]
     Indication: PLATELET COUNT INCREASED
     Route: 042
     Dates: start: 20200921, end: 20200923
  40. ONDANSETRON HYDROCHLORIDE TABLETS [Concomitant]
     Active Substance: ONDANSETRON HYDROCHLORIDE
     Indication: PROPHYLAXIS OF NAUSEA AND VOMITING
     Route: 048
     Dates: start: 20200715, end: 20200715
  41. VITAMIN C INJECTION [Concomitant]
     Active Substance: ASCORBIC ACID
     Indication: VITAMIN SUPPLEMENTATION
     Route: 042
     Dates: start: 20200727, end: 20200727
  42. FOSAPREPITANT DIMEGLUMINER FOR INJECTION [Concomitant]
     Indication: PROPHYLAXIS OF NAUSEA AND VOMITING
     Route: 042
     Dates: start: 20200715, end: 20200715
  43. FEBUXOSTAT TABLETS [Concomitant]
     Active Substance: FEBUXOSTAT
     Indication: GOUT
     Dosage: 40 MG, QN
     Route: 048
     Dates: start: 2008
  44. FUROSEMIDE. [Concomitant]
     Active Substance: FUROSEMIDE
     Indication: POLYURIA
     Route: 042
     Dates: start: 20200812, end: 20200812
  45. RABEPRAZOLE [Concomitant]
     Active Substance: RABEPRAZOLE
     Indication: PROPHYLAXIS
     Route: 042
     Dates: start: 20200812, end: 20200812
  46. DURVALUMAB. [Suspect]
     Active Substance: DURVALUMAB
     Indication: TRANSITIONAL CELL CARCINOMA
     Route: 042
     Dates: start: 20200715, end: 20200715
  47. GEMCITABINE. [Suspect]
     Active Substance: GEMCITABINE
     Indication: TRANSITIONAL CELL CARCINOMA
     Route: 042
     Dates: start: 20200911, end: 20200911
  48. ONDANSETRON HYDROCHLORIDE TABLETS [Concomitant]
     Active Substance: ONDANSETRON HYDROCHLORIDE
     Indication: PROPHYLAXIS OF NAUSEA AND VOMITING
     Route: 065
     Dates: start: 20200527, end: 20200527
  49. VITAMIN C INJECTION [Concomitant]
     Active Substance: ASCORBIC ACID
     Indication: VITAMIN SUPPLEMENTATION
     Route: 042
     Dates: start: 20200528, end: 20200528
  50. PERINDOPRIL ARGININE TABLETS [Concomitant]
     Indication: MYOCARDIAL INFARCTION
     Route: 048
     Dates: start: 20200611, end: 20200620
  51. LEUCOGEN TABLETS [Concomitant]
     Indication: MYELOSUPPRESSION
     Route: 048
     Dates: start: 20200601, end: 20200605
  52. AMINO?POLYPEPTIDE TABLETS [Concomitant]
     Indication: MYELOSUPPRESSION
     Route: 048
     Dates: start: 20200601, end: 20200605
  53. FUROSEMIDE. [Concomitant]
     Active Substance: FUROSEMIDE
     Indication: HYPERKALAEMIA
     Route: 048
     Dates: start: 20200804, end: 20200806
  54. PHLOROGLUCINOL FOR INJECTION [Concomitant]
     Indication: PAIN
     Route: 042
     Dates: start: 20200628, end: 20200628
  55. RABEPRAZOLE [Concomitant]
     Active Substance: RABEPRAZOLE
     Indication: PROPHYLAXIS
     Route: 042
     Dates: start: 20200715, end: 20200715
  56. RABEPRAZOLE [Concomitant]
     Active Substance: RABEPRAZOLE
     Indication: PROPHYLAXIS
     Route: 042
     Dates: start: 20200805, end: 20200805
  57. GLYCEROL ENEMA [Concomitant]
     Indication: CONSTIPATION
     Route: 054
     Dates: start: 20200727, end: 20200728
  58. RECOMBINANT HUMAN INTERLEUKIN?11 FOR INJECTION [Concomitant]
     Indication: PLATELET COUNT DECREASED
     Route: 030
     Dates: start: 20200723, end: 20200723
  59. RECOMBINANT HUMANTHROMBOPOIETIN INJECTION [Concomitant]
     Indication: PLATELET COUNT INCREASED
     Route: 058
     Dates: start: 20200724, end: 20200727
  60. CARBOPLATIN. [Suspect]
     Active Substance: CARBOPLATIN
     Indication: TRANSITIONAL CELL CARCINOMA
     Dosage: 5 AUC, EVERY THREE WEEKS
     Route: 042
     Dates: start: 20200805, end: 20200805
  61. FOSAPREPITANT DIMEGLUMINER FOR INJECTION [Concomitant]
     Indication: PROPHYLAXIS OF NAUSEA AND VOMITING
     Route: 042
     Dates: start: 20200805, end: 20200805
  62. LSOSORBIDE MONONITRATE SUS?TAINED RELEASE TABLETS [Concomitant]
     Indication: MYOCARDIAL INFARCTION
     Route: 048
     Dates: start: 20200611, end: 20200620
  63. METOPROLOL TARTRATE TABLETS [Concomitant]
     Active Substance: METOPROLOL TARTRATE
     Indication: MYOCARDIAL INFARCTION
     Route: 048
     Dates: start: 20200611, end: 20200613
  64. FUROSEMIDE. [Concomitant]
     Active Substance: FUROSEMIDE
     Indication: HYPERKALAEMIA
     Route: 042
     Dates: start: 20200812, end: 20200812
  65. RABEPRAZOLE [Concomitant]
     Active Substance: RABEPRAZOLE
     Indication: PROPHYLAXIS
     Route: 042
     Dates: start: 20200911, end: 20200911
  66. RECOMBINANT HUMAN INTERLEUKIN?11 FOR INJECTION [Concomitant]
     Indication: PLATELET COUNT DECREASED
     Route: 058
     Dates: start: 20200814, end: 20200814
  67. RECOMBINANT HUMANTHROMBOPOIETIN INJECTION [Concomitant]
     Indication: PLATELET COUNT INCREASED
     Route: 058
     Dates: start: 20200816, end: 20200816
  68. RECOMBINANT HUMANTHROMBOPOIETIN INJECTION [Concomitant]
     Indication: PLATELET COUNT DECREASED
     Route: 042
     Dates: start: 20200921, end: 20200923
  69. DURVALUMAB. [Suspect]
     Active Substance: DURVALUMAB
     Indication: TRANSITIONAL CELL CARCINOMA
     Route: 042
     Dates: start: 20200805, end: 20200805
  70. TREMELIMUMAB. [Suspect]
     Active Substance: TREMELIMUMAB
     Indication: TRANSITIONAL CELL CARCINOMA
     Route: 042
     Dates: start: 20200521, end: 20200521
  71. GEMCITABINE. [Suspect]
     Active Substance: GEMCITABINE
     Indication: TRANSITIONAL CELL CARCINOMA
     Route: 042
     Dates: start: 20200812, end: 20200812
  72. PALONOSETRON HYDROCHLORIDE INJECTION [Concomitant]
     Active Substance: PALONOSETRON HYDROCHLORIDE
     Indication: PROPHYLAXIS OF NAUSEA AND VOMITING
     Route: 042
     Dates: start: 20200521, end: 20200521
  73. PALONOSETRON HYDROCHLORIDE INJECTION [Concomitant]
     Active Substance: PALONOSETRON HYDROCHLORIDE
     Indication: PROPHYLAXIS OF NAUSEA AND VOMITING
     Route: 042
     Dates: start: 20200727, end: 20200727
  74. PALONOSETRON HYDROCHLORIDE INJECTION [Concomitant]
     Active Substance: PALONOSETRON HYDROCHLORIDE
     Indication: PROPHYLAXIS OF NAUSEA AND VOMITING
     Route: 042
     Dates: start: 20200812, end: 20200812
  75. PALONOSETRON HYDROCHLORIDE INJECTION [Concomitant]
     Active Substance: PALONOSETRON HYDROCHLORIDE
     Indication: PROPHYLAXIS OF NAUSEA AND VOMITING
     Route: 042
     Dates: start: 20200918, end: 20200919
  76. LEUCOGEN TABLETS [Concomitant]
     Indication: PLATELET COUNT DECREASED
     Route: 048
     Dates: start: 20200601, end: 20200605
  77. LEUCOGEN TABLETS [Concomitant]
     Indication: PLATELET COUNT DECREASED
     Route: 048
     Dates: start: 20200728, end: 20200729
  78. FUROSEMIDE. [Concomitant]
     Active Substance: FUROSEMIDE
     Indication: POLYURIA
     Route: 048
     Dates: start: 20200804, end: 20200806
  79. FUROSEMIDE. [Concomitant]
     Active Substance: FUROSEMIDE
     Indication: HYPERKALAEMIA
     Route: 042
     Dates: start: 20200805, end: 20200805
  80. OMEPRAZOLE SODIUM FOR INJECTION [Concomitant]
     Indication: PROPHYLAXIS
     Route: 042
     Dates: start: 20200629, end: 20200703
  81. RABEPRAZOLE [Concomitant]
     Active Substance: RABEPRAZOLE
     Indication: PROPHYLAXIS
     Route: 042
     Dates: start: 20200727, end: 20200727
  82. RECOMBINANT HUMANTHROMBOPOIETIN INJECTION [Concomitant]
     Indication: PLATELET COUNT DECREASED
     Route: 058
     Dates: start: 20200819, end: 20200821
  83. LORATADINE TABLETS [Concomitant]
     Active Substance: LORATADINE
     Indication: RASH MACULO-PAPULAR
     Route: 048
     Dates: start: 20200721, end: 20200723
  84. DURVALUMAB. [Suspect]
     Active Substance: DURVALUMAB
     Indication: TRANSITIONAL CELL CARCINOMA
     Route: 042
     Dates: start: 20200521, end: 20200521
  85. TREMELIMUMAB. [Suspect]
     Active Substance: TREMELIMUMAB
     Indication: TRANSITIONAL CELL CARCINOMA
     Route: 042
     Dates: start: 20200805, end: 20200805
  86. TREMELIMUMAB. [Suspect]
     Active Substance: TREMELIMUMAB
     Indication: TRANSITIONAL CELL CARCINOMA
     Route: 042
     Dates: start: 20200911, end: 20200911
  87. GEMCITABINE. [Suspect]
     Active Substance: GEMCITABINE
     Indication: TRANSITIONAL CELL CARCINOMA
     Route: 042
     Dates: start: 20200521, end: 20200521
  88. ONDANSETRON HYDROCHLORIDE TABLETS [Concomitant]
     Active Substance: ONDANSETRON HYDROCHLORIDE
     Indication: NAUSEA
     Route: 048
     Dates: start: 20200811, end: 20200811
  89. ONDANSETRON HYDROCHLORIDE TABLETS [Concomitant]
     Active Substance: ONDANSETRON HYDROCHLORIDE
     Indication: PROPHYLAXIS OF NAUSEA AND VOMITING
     Route: 048
     Dates: start: 20200811, end: 20200811
  90. PALONOSETRON HYDROCHLORIDE INJECTION [Concomitant]
     Active Substance: PALONOSETRON HYDROCHLORIDE
     Indication: PROPHYLAXIS OF NAUSEA AND VOMITING
     Route: 042
     Dates: start: 20200805, end: 20200805
  91. PANTOPRAZOLE ENTERIC?COATED TABLETS [Concomitant]
     Indication: PROPHYLAXIS
     Route: 048
     Dates: start: 20200611, end: 20200620
  92. FUROSEMIDE. [Concomitant]
     Active Substance: FUROSEMIDE
     Indication: POLYURIA
     Route: 042
     Dates: start: 20200805, end: 20200805
  93. CELEBREX [Concomitant]
     Active Substance: CELECOXIB
     Indication: CANCER PAIN
     Route: 048
     Dates: start: 20200707, end: 20200707
  94. RECOMBINANT HUMAN INTERLEUKIN?11 FOR INJECTION [Concomitant]
     Indication: PLATELET COUNT INCREASED
     Dosage: UNKNOWN
     Route: 065
     Dates: start: 202006, end: 202006
  95. DURVALUMAB. [Suspect]
     Active Substance: DURVALUMAB
     Indication: TRANSITIONAL CELL CARCINOMA
     Route: 042
     Dates: start: 20200911, end: 20200911
  96. CARBOPLATIN. [Suspect]
     Active Substance: CARBOPLATIN
     Indication: TRANSITIONAL CELL CARCINOMA
     Dosage: 5 AUC, EVERY THREE WEEKS
     Route: 042
     Dates: start: 20200521, end: 20200521
  97. CARBOPLATIN. [Suspect]
     Active Substance: CARBOPLATIN
     Indication: TRANSITIONAL CELL CARCINOMA
     Dosage: 5 AUC, EVERY THREE WEEKS
     Route: 042
     Dates: start: 20200911, end: 20200911
  98. MOMETASONE FUROATE. [Concomitant]
     Active Substance: MOMETASONE FUROATE
     Indication: RASH MACULO-PAPULAR
     Route: 061
     Dates: start: 20200527, end: 20200528
  99. ONDANSETRON HYDROCHLORIDE TABLETS [Concomitant]
     Active Substance: ONDANSETRON HYDROCHLORIDE
     Indication: NAUSEA
     Route: 048
     Dates: start: 20200715, end: 20200715
  100. FOSAPREPITANT DIMEGLUMINER FOR INJECTION [Concomitant]
     Indication: PROPHYLAXIS OF NAUSEA AND VOMITING
     Route: 042
     Dates: start: 20200812, end: 20200812
  101. CLOPIDOGREL HYDROGEN SULPHATE TABLETS [Concomitant]
     Active Substance: CLOPIDOGREL BISULFATE
     Indication: MYOCARDIAL INFARCTION
     Route: 048
     Dates: start: 20200611
  102. ATORVASTATIN CALCIUM TABLETS [Concomitant]
     Active Substance: ATORVASTATIN CALCIUM
     Indication: MYOCARDIAL INFARCTION
     Route: 048
     Dates: start: 20200611, end: 20200620
  103. FUROSEMIDE. [Concomitant]
     Active Substance: FUROSEMIDE
     Indication: POLYURIA
     Route: 048
     Dates: start: 20200821, end: 20200821
  104. RECOMBINANT HUMAN GRANULOCYTE COLONY STIMULATING FACTOR INJECTION [Concomitant]
     Indication: WHITE BLOOD CELL COUNT INCREASED
     Dosage: UNKNOWN
     Route: 065
     Dates: start: 202006, end: 202006
  105. RECOMBINANT HUMAN GRANULOCYTE COLONY STIMULATING FACTOR INJECTION [Concomitant]
     Indication: PLATELET COUNT DECREASED
     Route: 058
     Dates: start: 20200819, end: 20200819

REACTIONS (1)
  - Platelet count decreased [Recovered/Resolved]

NARRATIVE: CASE EVENT DATE: 20200804
